FAERS Safety Report 19801420 (Version 3)
Quarter: 2021Q4

REPORT INFORMATION
  Report Type: Spontaneous
  Country: US (occurrence: US)
  Receive Date: 20210908
  Receipt Date: 20211208
  Transmission Date: 20220303
  Serious: No
  Sender: FDA-Public Use
  Company Number: US-GLAXOSMITHKLINE-US2021AMR188338

PATIENT
  Age: 73 Year
  Sex: Female
  Weight: 68 kg

DRUGS (1)
  1. ZEJULA [Suspect]
     Active Substance: NIRAPARIB
     Indication: Product used for unknown indication
     Dosage: 200 MG, QD
     Dates: start: 20210823, end: 20210915

REACTIONS (14)
  - Dermatitis contact [Unknown]
  - Nausea [Not Recovered/Not Resolved]
  - Constipation [Not Recovered/Not Resolved]
  - Skin lesion [Unknown]
  - Skin swelling [Unknown]
  - Decreased appetite [Not Recovered/Not Resolved]
  - Pruritus [Unknown]
  - Dyspepsia [Unknown]
  - Eructation [Unknown]
  - Limb discomfort [Unknown]
  - Dyspnoea [Unknown]
  - Carbohydrate antigen 125 increased [Not Recovered/Not Resolved]
  - Drug ineffective [Unknown]
  - Product dose omission issue [Unknown]

NARRATIVE: CASE EVENT DATE: 20210823
